FAERS Safety Report 24030256 (Version 1)
Quarter: 2024Q2

REPORT INFORMATION
  Report Type: Spontaneous
  Country: US (occurrence: US)
  Receive Date: 20240628
  Receipt Date: 20240628
  Transmission Date: 20240716
  Serious: No
  Sender: FDA-Public Use
  Company Number: US-SANDOZ-SDZ2023US048422

PATIENT
  Sex: Female
  Weight: 41.73 kg

DRUGS (2)
  1. OMNITROPE [Suspect]
     Active Substance: SOMATROPIN
     Indication: Hypopituitarism
     Dosage: 2.4 MG 2 DOSE EVERY N/A N/A
     Route: 058
     Dates: start: 20231027
  2. OMNITROPE [Suspect]
     Active Substance: SOMATROPIN
     Indication: Hypopituitarism
     Dosage: 2.4 MG 2 DOSE EVERY N/A N/A
     Route: 058
     Dates: start: 20231027

REACTIONS (1)
  - Device difficult to use [Unknown]
